FAERS Safety Report 14332694 (Version 4)
Quarter: 2019Q2

REPORT INFORMATION
  Report Type: Report from Study
  Country: AT (occurrence: AT)
  Receive Date: 20171228
  Receipt Date: 20190408
  Transmission Date: 20190711
  Serious: Yes (Hospitalization, Other)
  Sender: FDA-Public Use
  Company Number: AT-MYLANLABS-2017M1082248

PATIENT
  Age: 19 Year
  Sex: Female
  Weight: 53 kg

DRUGS (41)
  1. ARIPIPRAZOLE. [Suspect]
     Active Substance: ARIPIPRAZOLE
     Indication: PRODUCT USED FOR UNKNOWN INDICATION
     Dosage: 2.5 MG, QD
     Route: 048
     Dates: start: 20141112, end: 20141113
  2. ATARAX [Concomitant]
     Active Substance: HYDROXYZINE HYDROCHLORIDE
     Indication: PRODUCT USED FOR UNKNOWN INDICATION
     Dosage: UNK
     Route: 065
     Dates: start: 20141106, end: 20141124
  3. ATARAX [Concomitant]
     Active Substance: HYDROXYZINE HYDROCHLORIDE
     Dosage: 25 MG, QD
     Route: 048
     Dates: start: 20141121, end: 20141121
  4. AERIUS                             /01009701/ [Concomitant]
     Active Substance: EBASTINE
     Indication: PRODUCT USED FOR UNKNOWN INDICATION
     Dosage: 5 MG, QD
     Route: 065
     Dates: start: 20141107, end: 20141113
  5. CIPRALEX [Suspect]
     Active Substance: ESCITALOPRAM OXALATE
     Dosage: 10 MG, QD
     Route: 048
     Dates: start: 20141109, end: 20141202
  6. ATARAX [Concomitant]
     Active Substance: HYDROXYZINE HYDROCHLORIDE
     Dosage: 50 MG, UNK
     Route: 048
  7. SERTRALINE HYDROCHLORIDE. [Concomitant]
     Active Substance: SERTRALINE HYDROCHLORIDE
     Dosage: 25 MILLIGRAM, QD
     Route: 065
     Dates: start: 20141103, end: 20141103
  8. MEXALEN [Concomitant]
     Active Substance: ACETAMINOPHEN
     Dosage: 500 MG, UNK
     Route: 048
  9. PRAXITEN [Concomitant]
     Active Substance: OXAZEPAM
     Dosage: 15 MILLIGRAM, QD
     Route: 048
     Dates: start: 20141106, end: 20141106
  10. ZOLDEM [Concomitant]
     Active Substance: ZOLPIDEM TARTRATE
     Dosage: UNK
  11. ZOLPIDEM [Concomitant]
     Active Substance: ZOLPIDEM\ZOLPIDEM TARTRATE
     Indication: PRODUCT USED FOR UNKNOWN INDICATION
     Dosage: 10 MG, UNK
     Route: 048
     Dates: start: 20141107, end: 20141201
  12. ATARAX [Concomitant]
     Active Substance: HYDROXYZINE HYDROCHLORIDE
     Dosage: 50 MG, QD
     Route: 048
     Dates: start: 20141118, end: 20141118
  13. ESCITALOPRAM [Suspect]
     Active Substance: ESCITALOPRAM OXALATE
     Indication: PRODUCT USED FOR UNKNOWN INDICATION
     Dosage: 5 MILLIGRAM, QD
     Route: 048
     Dates: start: 20141108, end: 20141108
  14. ESCITALOPRAM [Suspect]
     Active Substance: ESCITALOPRAM OXALATE
     Dosage: 10 MILLIGRAM, QD
     Route: 048
     Dates: start: 20141109, end: 20141202
  15. ATARAX [Concomitant]
     Active Substance: HYDROXYZINE HYDROCHLORIDE
     Dosage: 25 MG, UNK
  16. TEMESTA                            /00273201/ [Concomitant]
     Active Substance: LORAZEPAM
     Indication: PRODUCT USED FOR UNKNOWN INDICATION
     Dosage: 1 DF, QD, 1-2 MG, QD
     Route: 065
     Dates: start: 20141103, end: 20141105
  17. MEXALEN [Concomitant]
     Active Substance: ACETAMINOPHEN
     Dosage: 500 MG, QD
     Route: 048
     Dates: start: 20141126, end: 20141126
  18. ARIPIPRAZOLE. [Suspect]
     Active Substance: ARIPIPRAZOLE
     Dosage: 5 MG, QD
     Route: 048
     Dates: start: 20141114, end: 20141116
  19. CIPRALEX [Suspect]
     Active Substance: ESCITALOPRAM OXALATE
     Indication: PRODUCT USED FOR UNKNOWN INDICATION
     Dosage: 5 MG, QD
     Route: 048
     Dates: start: 20141108, end: 20141108
  20. ZOLDEM [Concomitant]
     Active Substance: ZOLPIDEM TARTRATE
     Dosage: UNK
  21. ATARAX [Concomitant]
     Active Substance: HYDROXYZINE HYDROCHLORIDE
     Dosage: 1 DF, QD,25-50 MG 1 DF, QD
     Route: 048
     Dates: start: 20141106, end: 20141110
  22. SEROQUEL [Concomitant]
     Active Substance: QUETIAPINE FUMARATE
     Dosage: 50 MG, QD
     Route: 065
     Dates: start: 20141104, end: 20141105
  23. PRAXITEN [Concomitant]
     Active Substance: OXAZEPAM
     Indication: PRODUCT USED FOR UNKNOWN INDICATION
     Dosage: 15 MG, QD
     Route: 048
     Dates: start: 20141106, end: 20141106
  24. PRAXITEN [Concomitant]
     Active Substance: OXAZEPAM
     Dosage: 15 MG, QD
     Route: 048
     Dates: start: 20141115, end: 20141115
  25. METHYLPREDNISOLONE. [Concomitant]
     Active Substance: METHYLPREDNISOLONE
     Indication: DERMATITIS ALLERGIC
     Dosage: UNK
     Route: 065
     Dates: start: 20141106
  26. ATARAX [Concomitant]
     Active Substance: HYDROXYZINE HYDROCHLORIDE
     Dosage: 25 MG, QD
     Route: 048
     Dates: start: 20141114, end: 20141116
  27. MEXALEN [Concomitant]
     Active Substance: ACETAMINOPHEN
     Indication: PRODUCT USED FOR UNKNOWN INDICATION
     Dosage: 500 MG, UNK
     Route: 048
     Dates: start: 20141112, end: 20141126
  28. ESCITALOPRAM [Suspect]
     Active Substance: ESCITALOPRAM OXALATE
     Dosage: 15 MILLIGRAM, QD
     Route: 048
     Dates: start: 20141203
  29. CIPRALEX [Suspect]
     Active Substance: ESCITALOPRAM OXALATE
     Dosage: 15 MG, QD
     Route: 048
     Dates: start: 20141203
  30. ZOLDEM [Concomitant]
     Active Substance: ZOLPIDEM TARTRATE
     Indication: PRODUCT USED FOR UNKNOWN INDICATION
     Dosage: UNK
     Route: 048
     Dates: start: 20141107, end: 20141203
  31. SERTRALINE HYDROCHLORIDE. [Concomitant]
     Active Substance: SERTRALINE HYDROCHLORIDE
     Dosage: UNK
     Route: 065
     Dates: start: 20141103, end: 20141106
  32. SEROQUEL [Concomitant]
     Active Substance: QUETIAPINE FUMARATE
     Indication: PRODUCT USED FOR UNKNOWN INDICATION
     Dosage: 75 MG, QD
     Route: 065
     Dates: start: 20141110, end: 20141110
  33. HOVA [Concomitant]
     Active Substance: HERBALS\HOPS\VALERIAN
     Indication: PRODUCT USED FOR UNKNOWN INDICATION
     Dosage: 1 DF, UNK
     Route: 065
     Dates: start: 20141106, end: 20141106
  34. MEXALEN [Concomitant]
     Active Substance: ACETAMINOPHEN
     Dosage: 500 MG, QD
     Route: 048
     Dates: start: 20141123, end: 20141124
  35. MEXALEN [Concomitant]
     Active Substance: ACETAMINOPHEN
     Dosage: 500 MG ,QD
     Route: 048
     Dates: start: 20141112, end: 20141112
  36. PRAXITEN [Concomitant]
     Active Substance: OXAZEPAM
     Dosage: 7.5 MG, QD
     Route: 048
     Dates: start: 20141107, end: 20141111
  37. PROBIOTICS                         /07325001/ [Concomitant]
     Active Substance: BIFIDOBACTERIUM LONGUM\LACTOBACILLUS ACIDOPHILUS\LACTOBACILLUS RHAMNOSUS
     Indication: PRODUCT USED FOR UNKNOWN INDICATION
     Dosage: UNK, QD
     Route: 065
     Dates: end: 20141112
  38. ZOLDEM [Concomitant]
     Active Substance: ZOLPIDEM TARTRATE
     Dosage: 5 MG, QD
     Route: 048
     Dates: start: 20141202, end: 20141203
  39. ZOLDEM [Concomitant]
     Active Substance: ZOLPIDEM TARTRATE
     Dosage: 10 MG, QD
     Route: 048
     Dates: start: 20141107, end: 20141201
  40. SERTRALINE HYDROCHLORIDE. [Concomitant]
     Active Substance: SERTRALINE HYDROCHLORIDE
     Indication: PRODUCT USED FOR UNKNOWN INDICATION
     Dosage: 50 MG, QD
     Route: 065
     Dates: start: 20141104, end: 20141106
  41. PRAXITEN [Concomitant]
     Active Substance: OXAZEPAM
     Dosage: UNK
     Route: 065
     Dates: start: 20141106, end: 20141115

REACTIONS (2)
  - Parkinsonism [Recovered/Resolved]
  - Off label use [Unknown]

NARRATIVE: CASE EVENT DATE: 20141116
